FAERS Safety Report 7767361-7 (Version None)
Quarter: 2011Q3

REPORT INFORMATION
  Report Type: 
  Country: None (occurrence: None)
  Receive Date: 20110922
  Receipt Date: 20100824
  Transmission Date: 20111222
  Serious: Yes (Other)
  Sender: FDA-Public Use
  Company Number: US-ASTRAZENECA-2007UW27639

PATIENT
  Age: 20144 Day
  Sex: Female
  Weight: 92.5 kg

DRUGS (27)
  1. COREG [Concomitant]
     Dates: start: 20060201
  2. THORAZINE [Concomitant]
  3. NAPROXEN SODIUM [Concomitant]
     Dates: start: 20060201
  4. SEROQUEL [Suspect]
     Route: 048
     Dates: start: 20060308
  5. SEROQUEL [Suspect]
     Route: 048
     Dates: start: 20060717, end: 20080308
  6. BENAZEPRIL HYDROCHLORIDE [Concomitant]
     Dates: start: 20060201
  7. PLAVIX [Concomitant]
     Dates: start: 20060201
  8. REGLAN [Concomitant]
     Dates: start: 20060201
  9. WELLBUTRIN XL [Concomitant]
     Dates: start: 20060201
  10. GLUCOPHAGE [Concomitant]
     Dates: start: 20060201
  11. SEROQUEL [Suspect]
     Dosage: 100 MG TO 200 MG
     Route: 048
     Dates: start: 20060301, end: 20070328
  12. SEROQUEL [Suspect]
     Dosage: 100-200 MG
     Route: 048
     Dates: start: 20060701
  13. ATENOLOL [Concomitant]
     Dates: start: 20060510
  14. CITALOPRAM HYDROBROMIDE [Concomitant]
     Dates: start: 20060510
  15. ZOCOR [Concomitant]
     Dates: start: 20060201
  16. KLOR-CON [Concomitant]
     Dates: start: 20060201
  17. LEVBID [Concomitant]
     Dates: start: 20060201
  18. DETROL LA [Concomitant]
     Dates: start: 20060201
  19. FLOXIN [Concomitant]
     Dates: start: 20060510
  20. ANTIVERT [Concomitant]
     Dosage: 25 MG TWO TIMES A DAY, AS NEEDED
     Dates: start: 20060201
  21. PROTONIX [Concomitant]
     Dates: start: 20060201
  22. RISPERDAL [Concomitant]
     Dates: start: 20000101, end: 20070101
  23. SEROQUEL [Suspect]
     Indication: BIPOLAR DISORDER
     Route: 048
     Dates: start: 20000101
  24. GABAPENTIN [Concomitant]
     Dates: start: 20060201
  25. LEVOTHYROXINE SODIUM [Concomitant]
     Dates: start: 20060201
  26. REMERON [Concomitant]
     Dates: start: 20060201
  27. SOLIAN [Concomitant]

REACTIONS (8)
  - CHEST PAIN [None]
  - DIABETES MELLITUS INADEQUATE CONTROL [None]
  - DIABETIC COMPLICATION [None]
  - HYPERLIPIDAEMIA [None]
  - DIABETIC COMA [None]
  - TYPE 2 DIABETES MELLITUS [None]
  - BLOOD CHOLESTEROL INCREASED [None]
  - OBESITY [None]
